FAERS Safety Report 12610449 (Version 2)
Quarter: 2016Q3

REPORT INFORMATION
  Report Type: Spontaneous
  Country: US (occurrence: US)
  Receive Date: 20160801
  Receipt Date: 20160804
  Transmission Date: 20161109
  Serious: No
  Sender: FDA-Public Use
  Company Number: US-BEH-2016071650

PATIENT
  Age: 13 Year
  Sex: Female
  Weight: 61.22 kg

DRUGS (2)
  1. PRIVIGEN [Suspect]
     Active Substance: HUMAN IMMUNOGLOBULIN G
     Indication: TRISOMY 21
     Dosage: 25 G, QMT
     Route: 065
     Dates: start: 20140814
  2. PRIVIGEN [Suspect]
     Active Substance: HUMAN IMMUNOGLOBULIN G
     Indication: IMMUNE SYSTEM DISORDER

REACTIONS (1)
  - Hair disorder [Unknown]

NARRATIVE: CASE EVENT DATE: 20160218
